FAERS Safety Report 7732490-0 (Version None)
Quarter: 2011Q3

REPORT INFORMATION
  Report Type: 
  Country: None (occurrence: None)
  Receive Date: 20110906
  Receipt Date: 20110825
  Transmission Date: 20111222
  Serious: Yes (Other)
  Sender: FDA-Public Use
  Company Number: US-ASTRAZENECA-2011SE26735

PATIENT
  Age: 62 Year
  Sex: Female

DRUGS (1)
  1. NEXIUM [Suspect]
     Indication: GASTROOESOPHAGEAL REFLUX DISEASE
     Route: 048

REACTIONS (9)
  - JOINT EFFUSION [None]
  - BREAST CANCER [None]
  - MOVEMENT DISORDER [None]
  - OSTEOARTHRITIS [None]
  - OROPHARYNGEAL PAIN [None]
  - EROSIVE OESOPHAGITIS [None]
  - CHEST PAIN [None]
  - MENISCUS LESION [None]
  - DRUG DOSE OMISSION [None]
